FAERS Safety Report 8080892-8 (Version None)
Quarter: 2012Q1

REPORT INFORMATION
  Report Type: 
  Country: None (occurrence: None)
  Receive Date: 20120130
  Receipt Date: 20120125
  Transmission Date: 20120608
  Serious: Yes (Hospitalization, Other)
  Sender: FDA-Public Use
  Company Number: US-ABBOTT-11P-163-0861512-00

PATIENT
  Sex: Male

DRUGS (16)
  1. NEXIUM [Concomitant]
     Indication: GASTROOESOPHAGEAL REFLUX DISEASE
  2. LIPITOR [Concomitant]
     Indication: BLOOD CHOLESTEROL INCREASED
  3. ACTOS [Concomitant]
     Indication: PRODUCT USED FOR UNKNOWN INDICATION
  4. ASPIRIN [Concomitant]
     Indication: PRODUCT USED FOR UNKNOWN INDICATION
  5. PROZAC [Concomitant]
     Indication: DEPRESSION
  6. TOPROL-XL [Concomitant]
     Indication: HYPERTENSION
  7. PLAVIX [Concomitant]
     Indication: ANTICOAGULANT THERAPY
  8. ALTASE [Concomitant]
     Indication: PRODUCT USED FOR UNKNOWN INDICATION
  9. GLIPIZIDE [Concomitant]
     Indication: DIABETES MELLITUS
  10. DILANTIN [Concomitant]
     Indication: CONVULSION
  11. ALLEGRA [Concomitant]
     Indication: HYPERSENSITIVITY
  12. HUMIRA [Suspect]
     Indication: PSORIASIS
     Route: 058
     Dates: start: 20110604
  13. ZETIA [Concomitant]
     Indication: PRODUCT USED FOR UNKNOWN INDICATION
  14. NIASPAN [Concomitant]
     Indication: BLOOD TRIGLYCERIDES INCREASED
  15. SYNTHROID [Concomitant]
     Indication: HYPOTHYROIDISM
  16. HUMALOG [Concomitant]
     Indication: DIABETES MELLITUS
     Dosage: 11 UNITS AM AND AT NOON, 22 UNITS IN PM
     Route: 058

REACTIONS (6)
  - MALIGNANT MELANOMA [None]
  - DYSARTHRIA [None]
  - DEAFNESS [None]
  - ISCHAEMIC STROKE [None]
  - VISUAL IMPAIRMENT [None]
  - CONFUSIONAL STATE [None]
